FAERS Safety Report 6122141-3 (Version None)
Quarter: 2009Q1

REPORT INFORMATION
  Report Type: 
  Country: None (occurrence: None)
  Receive Date: 20090316
  Receipt Date: 20090316
  Transmission Date: 20090719
  Serious: No
  Sender: FDA-Public Use
  Company Number: None

PATIENT
  Age: 28 Year
  Sex: Female
  Weight: 68.0396 kg

DRUGS (4)
  1. WELLBUTRIN XL [Suspect]
     Indication: BINGE EATING
     Dosage: 1 DAILY PO
     Route: 048
     Dates: start: 20081001, end: 20090101
  2. WELLBUTRIN XL [Suspect]
     Indication: DEPRESSION
     Dosage: 1 DAILY PO
     Route: 048
     Dates: start: 20081001, end: 20090101
  3. TOPAMAX [Suspect]
     Indication: BINGE EATING
     Dosage: 1 DAILY PO
     Route: 048
     Dates: start: 20090101, end: 20090110
  4. TOPAMAX [Suspect]
     Indication: DEPRESSION
     Dosage: 1 DAILY PO
     Route: 048
     Dates: start: 20090101, end: 20090110

REACTIONS (6)
  - INSOMNIA [None]
  - MANIA [None]
  - MIGRAINE [None]
  - MUSCLE SPASMS [None]
  - PANIC ATTACK [None]
  - TREMOR [None]
